FAERS Safety Report 11864957 (Version 3)
Quarter: 2015Q4

REPORT INFORMATION
  Report Type: Spontaneous
  Country: US (occurrence: US)
  Receive Date: 20151223
  Receipt Date: 20151229
  Transmission Date: 20160305
  Serious: No
  Sender: FDA-Public Use
  Company Number: US-PFIZER INC-2015463080

PATIENT
  Age: 44 Year
  Sex: Female
  Weight: 47.63 kg

DRUGS (1)
  1. VISTARIL [Suspect]
     Active Substance: HYDROXYZINE PAMOATE
     Indication: ANXIETY
     Dosage: 50 MG, 3X/DAY
     Route: 048
     Dates: start: 201506

REACTIONS (1)
  - Drug effect incomplete [Unknown]
